FAERS Safety Report 24889997 (Version 2)
Quarter: 2025Q1

REPORT INFORMATION
  Report Type: Report from Study
  Country: US (occurrence: US)
  Receive Date: 20250127
  Receipt Date: 20250223
  Transmission Date: 20250409
  Serious: Yes (Hospitalization)
  Sender: BIOVITRUM
  Company Number: US-BIOVITRUM-2024-US-012102

PATIENT
  Age: 45 Year
  Sex: Female

DRUGS (2)
  1. KINERET [Suspect]
     Active Substance: ANAKINRA
     Indication: Autoinflammatory disease
     Route: 058
     Dates: start: 20181229
  2. KINERET [Suspect]
     Active Substance: ANAKINRA
     Route: 058

REACTIONS (15)
  - Rash [Unknown]
  - Intentional product misuse [Not Recovered/Not Resolved]
  - Product dose omission issue [Unknown]
  - Anxiety [Unknown]
  - Insurance issue [Unknown]
  - Pyrexia [Unknown]
  - Streptococcus test positive [Unknown]
  - Cystocele [Unknown]
  - Inflammation [Unknown]
  - Peripheral swelling [Unknown]
  - Swelling [Unknown]
  - Mental disorder [Unknown]
  - Depression [Unknown]
  - Post-traumatic stress disorder [Unknown]
  - Culture urine positive [Unknown]

NARRATIVE: CASE EVENT DATE: 20181229
